FAERS Safety Report 10727117 (Version 1)
Quarter: 2015Q1

REPORT INFORMATION
  Report Type: Spontaneous
  Country: US (occurrence: US)
  Receive Date: 20150121
  Receipt Date: 20150121
  Transmission Date: 20150721
  Serious: Yes (Life-Threatening, Hospitalization, Other)
  Sender: FDA-Public Use
  Company Number: US-ROXANE LABORATORIES, INC.-2015-RO-00074RO

PATIENT
  Age: 67 Year
  Sex: Male

DRUGS (1)
  1. SODIUM PS [Suspect]
     Active Substance: SODIUM POLYSTYRENE SULFONATE
     Indication: HYPERKALAEMIA
     Route: 065

REACTIONS (3)
  - Pneumatosis intestinalis [Unknown]
  - Ischaemic enteritis [Unknown]
  - Crystal deposit intestine [Unknown]
